FAERS Safety Report 4662949-4 (Version None)
Quarter: 2005Q2

REPORT INFORMATION
  Report Type: 
  Country: None (occurrence: None)
  Receive Date: 20050511
  Receipt Date: 20050222
  Transmission Date: 20051028
  Serious: Yes (Hospitalization)
  Sender: FDA-Public Use
  Company Number: 396497

PATIENT
  Age: 44 Year
  Sex: Female
  Weight: 49.9 kg

DRUGS (5)
  1. PEGASYS [Suspect]
     Indication: HEPATITIS C VIRUS
     Dosage: 180 MCG, 1 PER WEEK, SUBCUTANEOUS
     Route: 058
     Dates: start: 20050115
  2. COPEGUS [Suspect]
     Indication: HEPATITIS C VIRUS
     Dosage: 600 MG, 2 PER DAY, ORAL
     Route: 048
     Dates: start: 20050115
  3. LEXAPRO [Concomitant]
  4. TRILEPTAL [Concomitant]
  5. ZOLOFT [Concomitant]

REACTIONS (21)
  - ANAEMIA [None]
  - ANOREXIA [None]
  - ASTHENIA [None]
  - BACK PAIN [None]
  - BLOOD PRESSURE INCREASED [None]
  - CONTUSION [None]
  - DECREASED APPETITE [None]
  - DEPRESSION [None]
  - FATIGUE [None]
  - FEELING ABNORMAL [None]
  - HEADACHE [None]
  - INJECTION SITE PAIN [None]
  - INJECTION SITE SWELLING [None]
  - INSOMNIA [None]
  - MYALGIA [None]
  - NAUSEA [None]
  - PAIN [None]
  - PYREXIA [None]
  - RENAL PAIN [None]
  - WEIGHT DECREASED [None]
  - WHITE BLOOD CELL COUNT DECREASED [None]
